FAERS Safety Report 9752851 (Version 2)
Quarter: 2014Q1

REPORT INFORMATION
  Report Type: Spontaneous
  Country: FR (occurrence: FR)
  Receive Date: 20131213
  Receipt Date: 20140220
  Transmission Date: 20141002
  Serious: Yes (Death, Hospitalization)
  Sender: FDA-Public Use
  Company Number: FR-SA-2013SA126482

PATIENT
  Age: 64 Year
  Sex: Female

DRUGS (14)
  1. MIANSERINE [Suspect]
     Indication: PRODUCT USED FOR UNKNOWN INDICATION
     Route: 048
     Dates: end: 20130829
  2. LASILIX [Suspect]
     Indication: HYPERTENSION
     Route: 048
     Dates: end: 20130829
  3. LANTUS [Suspect]
     Indication: PRODUCT USED FOR UNKNOWN INDICATION
     Route: 058
     Dates: end: 20130829
  4. PREVISCAN [Suspect]
     Indication: ATRIAL FIBRILLATION
     Route: 048
     Dates: end: 20130829
  5. TAHOR [Suspect]
     Indication: HYPERCHOLESTEROLAEMIA
     Route: 048
     Dates: end: 20130909
  6. ARICEPT [Suspect]
     Indication: DEMENTIA
     Route: 048
     Dates: end: 20130829
  7. EBIXA [Suspect]
     Indication: DEMENTIA
     Route: 048
     Dates: end: 20130829
  8. RISPERDAL [Suspect]
     Indication: PRODUCT USED FOR UNKNOWN INDICATION
     Route: 048
     Dates: end: 20130829
  9. TAREG [Suspect]
     Indication: HYPERTENSION
     Route: 048
     Dates: end: 20130829
  10. CARDENSIEL [Suspect]
     Indication: HYPERTENSION
     Route: 048
     Dates: end: 20130829
  11. INEXIUM [Suspect]
     Indication: PRODUCT USED FOR UNKNOWN INDICATION
     Route: 048
     Dates: end: 20130829
  12. ZYLORIC [Suspect]
     Indication: HYPERURICAEMIA
     Route: 048
     Dates: end: 20130829
  13. NOVORAPID [Concomitant]
  14. ATHYMIL [Concomitant]

REACTIONS (4)
  - Subdural haematoma [Fatal]
  - General physical health deterioration [Fatal]
  - Cognitive disorder [Fatal]
  - Somnolence [Fatal]
